FAERS Safety Report 7269478-2 (Version None)
Quarter: 2011Q1

REPORT INFORMATION
  Report Type: 
  Country: None (occurrence: None)
  Receive Date: 20110125
  Receipt Date: 20110119
  Transmission Date: 20110831
  Serious: Yes (Hospitalization)
  Sender: FDA-Public Use
  Company Number: FRP10001244

PATIENT
  Age: 85 Year
  Sex: Male

DRUGS (7)
  1. AREDIA [Suspect]
     Dates: start: 20051201, end: 20070101
  2. POTASSIUM CHLORIDE [Concomitant]
  3. DUPHALAC /00163401/ (LACTULOSE) [Concomitant]
  4. GLUCOPHAGE /00082701/ (METFORMIN) [Concomitant]
  5. CELECTOL (CELIPROLOL HYDROCHLORIDE) [Concomitant]
  6. OMEPRAZOLE [Concomitant]
  7. ACTONEL [Suspect]
     Dosage: 35 MG, 1 /WEEK, ORAL
     Route: 048
     Dates: start: 20090101, end: 20100801

REACTIONS (10)
  - NECROSIS [None]
  - BONE SWELLING [None]
  - PAIN IN JAW [None]
  - OSTEITIS [None]
  - OSTEONECROSIS OF JAW [None]
  - DYSPNOEA [None]
  - APICAL GRANULOMA [None]
  - LUNG DISORDER [None]
  - GINGIVAL DISORDER [None]
  - GINGIVAL ULCERATION [None]
